FAERS Safety Report 11021548 (Version 2)
Quarter: 2015Q2

REPORT INFORMATION
  Report Type: Spontaneous
  Country: JP (occurrence: JP)
  Receive Date: 20150413
  Receipt Date: 20150417
  Transmission Date: 20150821
  Serious: Yes (Death)
  Sender: FDA-Public Use
  Company Number: JP-SA-2015SA041694

PATIENT
  Age: 47 Year
  Sex: Male

DRUGS (6)
  1. SOLANAX [Suspect]
     Active Substance: ALPRAZOLAM
     Indication: DEPRESSION
     Dosage: 0.4MG
     Route: 048
     Dates: start: 20100204, end: 20141204
  2. HALCION [Suspect]
     Active Substance: TRIAZOLAM
     Indication: DEPRESSION
     Dosage: 0.25 MG
     Route: 048
     Dates: start: 20100204, end: 20141204
  3. MYSLEE [Suspect]
     Active Substance: ZOLPIDEM TARTRATE
     Indication: DEPRESSION
     Route: 048
     Dates: start: 20100204, end: 20101204
  4. DOGMATYL [Suspect]
     Active Substance: SULPIRIDE
     Indication: DEPRESSION
     Route: 048
     Dates: start: 20100204, end: 20141204
  5. NOCBIN [Suspect]
     Active Substance: DISULFIRAM
     Indication: ALCOHOLISM
     Dosage: FORM: EXCEPT DUSTING POWDER
     Route: 048
     Dates: start: 20100204, end: 20141204
  6. LUVOX [Suspect]
     Active Substance: FLUVOXAMINE MALEATE
     Indication: DEPRESSION
     Dosage: 50 MG
     Route: 048
     Dates: start: 20100204, end: 20141204

REACTIONS (2)
  - Toxicity to various agents [Fatal]
  - Off label use [Unknown]

NARRATIVE: CASE EVENT DATE: 20100204
